FAERS Safety Report 7243006 (Version 4)
Quarter: 2014Q1

REPORT INFORMATION
  Report Type: Spontaneous
  Country: US (occurrence: US)
  Receive Date: 20100112
  Receipt Date: 20140117
  Transmission Date: 20141002
  Serious: Yes (Hospitalization, Other)
  Sender: FDA-Public Use
  Company Number: US-BAYER-201010629NA

PATIENT
  Age: 23 Year
  Sex: Female
  Weight: 84 kg

DRUGS (30)
  1. YAZ [Suspect]
     Indication: ORAL CONTRACEPTION
     Dosage: UNK
     Route: 048
     Dates: start: 200809, end: 200812
  2. YAZ [Suspect]
     Indication: ACNE
  3. ANTIBIOTICS [Concomitant]
     Dates: start: 2000, end: 2009
  4. MOTRIN [Concomitant]
     Dates: start: 200709
  5. MOTRIN [Concomitant]
     Dates: start: 200810
  6. MOTRIN [Concomitant]
     Dates: start: 200902
  7. OXYCODONE [Concomitant]
     Indication: PAIN
     Dates: start: 200902
  8. ALLEGRA [Concomitant]
     Indication: HYPERSENSITIVITY
  9. MIDAZOLAM [Concomitant]
     Indication: ANXIETY
  10. MIRALAX [Concomitant]
  11. OXYCODONE [Concomitant]
  12. PERCOCET [Concomitant]
     Route: 048
     Dates: start: 20090113
  13. OXYCONTIN [Concomitant]
     Route: 048
     Dates: start: 200811, end: 200910
  14. OXYCONTIN [Concomitant]
     Route: 048
     Dates: start: 20090105
  15. METHADONE [Concomitant]
     Dates: start: 200802
  16. METHADONE [Concomitant]
     Dates: start: 200806
  17. METHADONE [Concomitant]
     Dates: start: 200809
  18. TRAMADOL [Concomitant]
     Dates: start: 20091218
  19. DURAGESIC [Concomitant]
     Dates: start: 200808, end: 200810
  20. VALIUM [Concomitant]
     Dates: start: 200802, end: 200803
  21. VALIUM [Concomitant]
     Dates: start: 200806
  22. VALIUM [Concomitant]
     Dates: start: 200911
  23. MOTRIN [Concomitant]
     Dates: start: 200810
  24. MOTRIN [Concomitant]
     Dates: start: 200902
  25. OXYCOCET [Concomitant]
     Route: 048
     Dates: start: 20090113
  26. OXYCONTIN [Concomitant]
     Route: 048
     Dates: start: 20090105
  27. METHADONE [Concomitant]
     Dates: start: 200806
  28. METHADONE [Concomitant]
     Dates: start: 200809
  29. VALIUM [Concomitant]
     Dates: start: 200806
  30. VALIUM [Concomitant]
     Dates: start: 200911

REACTIONS (13)
  - Gallbladder disorder [Unknown]
  - Cholelithiasis [Recovered/Resolved]
  - Cholecystitis chronic [None]
  - Abdominal pain upper [Recovered/Resolved]
  - Nausea [Recovered/Resolved]
  - Vomiting [Recovered/Resolved]
  - Decreased appetite [Recovered/Resolved]
  - Murphy^s sign positive [Recovered/Resolved]
  - Biliary colic [Recovered/Resolved]
  - Abdominal pain [Recovered/Resolved]
  - Gallbladder disorder [Recovered/Resolved]
  - Ampulla of Vater stenosis [Recovered/Resolved]
  - Unevaluable event [Recovered/Resolved]
